FAERS Safety Report 8335884-8 (Version None)
Quarter: 2012Q2

REPORT INFORMATION
  Report Type: 
  Country: None (occurrence: None)
  Receive Date: 20120501
  Receipt Date: 20120501
  Transmission Date: 20120825
  Serious: Yes (Hospitalization)
  Sender: FDA-Public Use
  Company Number: None

PATIENT
  Age: 65 Year
  Sex: Female
  Weight: 103.8 kg

DRUGS (11)
  1. GABAPENTIN [Concomitant]
  2. SAXAGLIPTAN [Concomitant]
  3. SIMVASTATIN [Concomitant]
  4. IBUPROFEN TABLETS [Suspect]
     Dosage: 800MG PRN TID CHRONIC
  5. METFORMIN HCL [Concomitant]
  6. VISINE EYE DROPS [Concomitant]
  7. CLONIDINE [Concomitant]
  8. SYNTHROID [Concomitant]
  9. VOLTAREN [Suspect]
     Indication: DIABETIC NEUROPATHY
     Dosage: 1% BID PRN TOP  CHRONIC
     Route: 061
  10. ASPIRIN [Suspect]
     Dosage: 81MG QD PO CHRONIC
     Route: 048
  11. CELEBREX [Suspect]
     Indication: DIABETIC NEUROPATHY
     Dosage: 200MG BID PRN PO CHRONIC

REACTIONS (1)
  - DIVERTICULUM INTESTINAL HAEMORRHAGIC [None]
